FAERS Safety Report 9966004 (Version 1)
Quarter: 2014Q1

REPORT INFORMATION
  Report Type: Report from Study
  Country: US (occurrence: US)
  Receive Date: 20140305
  Receipt Date: 20140305
  Transmission Date: 20141002
  Serious: No
  Sender: FDA-Public Use
  Company Number: US-ABBVIE-13P-163-1127674-00

PATIENT
  Age: 63 Year
  Sex: Female

DRUGS (8)
  1. HUMIRA [Suspect]
     Indication: UVEITIS
     Dates: start: 20130326
  2. BENADRYL [Suspect]
     Indication: INJECTION SITE REACTION
     Dosage: 12.5 MG
     Dates: start: 20130722
  3. ESTRADIOL [Concomitant]
     Indication: PRODUCT USED FOR UNKNOWN INDICATION
     Dosage: 1 MG DAILY
  4. ACIPHEX [Concomitant]
     Indication: PRODUCT USED FOR UNKNOWN INDICATION
     Dosage: 20 MG DAILY
  5. SYNTHROID [Concomitant]
     Indication: PRODUCT USED FOR UNKNOWN INDICATION
     Dosage: 75 MCG DAILY
  6. ALDACTONE [Concomitant]
     Indication: PRODUCT USED FOR UNKNOWN INDICATION
     Dosage: 50 MG DAILY
  7. ATIVAN [Concomitant]
     Indication: PRODUCT USED FOR UNKNOWN INDICATION
     Dosage: AS NEEDED
  8. XANAX [Concomitant]
     Indication: PRODUCT USED FOR UNKNOWN INDICATION
     Dosage: AS NEEDED

REACTIONS (24)
  - Fatigue [Recovering/Resolving]
  - Off label use [Unknown]
  - Oral discomfort [Recovering/Resolving]
  - Injection site pain [Recovering/Resolving]
  - Sinusitis [Unknown]
  - Injection site inflammation [Unknown]
  - Injection site erythema [Unknown]
  - Injection site swelling [Unknown]
  - Injection site pruritus [Unknown]
  - Paraesthesia [Unknown]
  - Heart rate increased [Unknown]
  - Nasal congestion [Unknown]
  - Erythema [Unknown]
  - Tinnitus [Unknown]
  - Headache [Unknown]
  - Chromatopsia [Unknown]
  - Loss of consciousness [Unknown]
  - Excoriation [Unknown]
  - Chills [Unknown]
  - Blood pressure increased [Unknown]
  - Fall [Unknown]
  - Ligament sprain [Unknown]
  - Retinal disorder [Unknown]
  - Eye discharge [Unknown]
